FAERS Safety Report 5877890-9 (Version None)
Quarter: 2008Q3

REPORT INFORMATION
  Report Type: 
  Country: None (occurrence: None)
  Receive Date: 20080911
  Receipt Date: 20080905
  Transmission Date: 20090109
  Serious: Yes (Other)
  Sender: FDA-Public Use
  Company Number: A0562983A

PATIENT
  Age: 76 Year
  Sex: Female

DRUGS (8)
  1. ADVAIR DISKUS 100/50 [Suspect]
     Indication: ASTHMA
     Dosage: 1PUFF TWICE PER DAY
     Route: 055
  2. FLOVENT [Suspect]
     Indication: ASTHMA
     Dosage: 1PUFF TWICE PER DAY
     Route: 055
     Dates: start: 19970101
  3. SYNTHROID [Concomitant]
  4. EVISTA [Concomitant]
  5. FOSAMAX [Concomitant]
  6. RHINOCORT [Concomitant]
  7. VITAMIN TAB [Concomitant]
  8. SINGULAIR [Concomitant]

REACTIONS (6)
  - CANDIDIASIS [None]
  - CONTUSION [None]
  - SKIN ATROPHY [None]
  - SKIN HAEMORRHAGE [None]
  - SKIN INJURY [None]
  - WRONG TECHNIQUE IN DRUG USAGE PROCESS [None]
